FAERS Safety Report 11656632 (Version 1)
Quarter: 2015Q4

REPORT INFORMATION
  Report Type: Spontaneous
  Country: US (occurrence: US)
  Receive Date: 20151023
  Receipt Date: 20151023
  Transmission Date: 20160304
  Serious: No
  Sender: FDA-Public Use
  Company Number: US-009507513-1510USA011358

PATIENT
  Sex: Female

DRUGS (1)
  1. NEXPLANON [Suspect]
     Active Substance: ETONOGESTREL
     Dosage: ONE ROD/THREE YEARS
     Route: 059
     Dates: end: 20150701

REACTIONS (3)
  - Device kink [Recovered/Resolved]
  - Product quality issue [Unknown]
  - No adverse event [Unknown]
